FAERS Safety Report 7438678-0 (Version None)
Quarter: 2011Q2

REPORT INFORMATION
  Report Type: 
  Country: None (occurrence: None)
  Receive Date: 20110426
  Receipt Date: 20110421
  Transmission Date: 20111010
  Serious: Yes (Death)
  Sender: FDA-Public Use
  Company Number: GB-PFIZER INC-2011087598

PATIENT
  Age: 49 Year
  Sex: Female

DRUGS (3)
  1. CYTARABINE [Suspect]
     Indication: MYELODYSPLASTIC SYNDROME
     Dosage: UNK
     Dates: start: 20110209, end: 20110216
  2. DAUNORUBICIN [Suspect]
     Dosage: UNK
     Dates: start: 20110209, end: 20110216
  3. GEMTUZUMAB OZOGAMICIN [Suspect]
     Indication: MYELODYSPLASTIC SYNDROME
     Dosage: 6 MG, UNK
     Dates: start: 20110209, end: 20110216

REACTIONS (4)
  - RENAL FAILURE ACUTE [None]
  - ENTEROCOCCAL INFECTION [None]
  - NEUTROPENIC SEPSIS [None]
  - RESPIRATORY FAILURE [None]
